FAERS Safety Report 16568926 (Version 1)
Quarter: 2019Q3

REPORT INFORMATION
  Report Type: Spontaneous
  Country: ES (occurrence: ES)
  Receive Date: 20190713
  Receipt Date: 20190713
  Transmission Date: 20191004
  Serious: Yes (Other)
  Sender: FDA-Public Use
  Company Number: ES-TEVA-2019-ES-1075887

PATIENT
  Age: 64 Year
  Sex: Male

DRUGS (1)
  1. ATORVASTATINA (7400A) [Suspect]
     Active Substance: ATORVASTATIN
     Route: 048
     Dates: start: 2019

REACTIONS (2)
  - Medication error [Unknown]
  - Syncope [Recovered/Resolved]

NARRATIVE: CASE EVENT DATE: 2019
